FAERS Safety Report 8972133 (Version 2)
Quarter: 2013Q1

REPORT INFORMATION
  Report Type: Spontaneous
  Country: FR (occurrence: FR)
  Receive Date: 20121219
  Receipt Date: 20130219
  Transmission Date: 20140127
  Serious: Yes (Life-Threatening, Hospitalization, Other)
  Sender: FDA-Public Use
  Company Number: FR-ELI_LILLY_AND_COMPANY-FR201212004977

PATIENT
  Age: 61 Year
  Sex: Male
  Weight: 74 kg

DRUGS (2)
  1. CIALIS [Suspect]
     Indication: ERECTILE DYSFUNCTION
     Dosage: 20 MG, PRN
     Route: 048
  2. NISISCO [Concomitant]
     Indication: HYPERTENSION
     Dosage: 1 DF, UNKNOWN
     Route: 048
     Dates: start: 2011

REACTIONS (2)
  - Aortic dissection [Recovered/Resolved with Sequelae]
  - Aneurysm [Unknown]
